FAERS Safety Report 7260109-4 (Version None)
Quarter: 2011Q1

REPORT INFORMATION
  Report Type: 
  Country: None (occurrence: None)
  Receive Date: 20110130
  Receipt Date: 20100914
  Transmission Date: 20110831
  Serious: No
  Sender: FDA-Public Use
  Company Number: US-ABBOTT-10P-163-0671774-00

PATIENT
  Sex: Male
  Weight: 95.34 kg

DRUGS (3)
  1. MERCAPTOPURINE [Concomitant]
     Indication: CROHN'S DISEASE
  2. HUMIRA [Suspect]
     Indication: CROHN'S DISEASE
     Dates: start: 20080101
  3. ACIPHEX [Concomitant]
     Indication: DYSPEPSIA

REACTIONS (3)
  - FATIGUE [None]
  - UNEVALUABLE EVENT [None]
  - DIABETES MELLITUS [None]
